FAERS Safety Report 13825174 (Version 1)
Quarter: 2017Q3

REPORT INFORMATION
  Report Type: Spontaneous
  Country: US (occurrence: US)
  Receive Date: 20170802
  Receipt Date: 20170802
  Transmission Date: 20171127
  Serious: Yes (Other)
  Sender: FDA-Public Use
  Company Number: US-SHIRE-US201716251

PATIENT
  Age: 3 Year
  Sex: Male

DRUGS (2)
  1. ELAPRASE [Suspect]
     Active Substance: IDURSULFASE
     Indication: MUCOPOLYSACCHARIDOSIS II
     Dosage: 0.5 MG/KG, 1X/WEEK
     Route: 041
  2. ELAPRASE [Suspect]
     Active Substance: IDURSULFASE
     Dosage: 1 MG/KG, 1X/WEEK
     Route: 041

REACTIONS (5)
  - Respiratory tract infection [Recovering/Resolving]
  - Exercise tolerance decreased [Recovering/Resolving]
  - Joint range of motion decreased [Unknown]
  - Drug ineffective [Unknown]
  - Dysmorphism [Unknown]
